FAERS Safety Report 15121341 (Version 1)
Quarter: 2018Q3

REPORT INFORMATION
  Report Type: Spontaneous
  Country: FR (occurrence: FR)
  Receive Date: 20180709
  Receipt Date: 20180709
  Transmission Date: 20181010
  Serious: Yes (Hospitalization)
  Sender: FDA-Public Use
  Company Number: FR-PFIZER INC-2018271646

PATIENT
  Age: 77 Year
  Sex: Female

DRUGS (16)
  1. LEVOTHYROX [Concomitant]
     Active Substance: LEVOTHYROXINE
     Dosage: UNK
     Route: 048
  2. SERESTA [Suspect]
     Active Substance: OXAZEPAM
     Dosage: UNK
     Route: 048
  3. OXYNORMORO [Suspect]
     Active Substance: OXYCODONE HYDROCHLORIDE
     Indication: BACK PAIN
     Dosage: UNK
     Route: 048
  4. ACIDE FOLIQUE [Concomitant]
     Active Substance: FOLIC ACID
     Dosage: UNK
     Route: 048
  5. SPIRIVA [Concomitant]
     Active Substance: TIOTROPIUM BROMIDE MONOHYDRATE
     Dosage: UNK
     Route: 055
  6. DOLIPRANE [Concomitant]
     Active Substance: ACETAMINOPHEN
     Dosage: UNK
     Route: 048
  7. FLECAINE [Concomitant]
     Active Substance: FLECAINIDE
     Dosage: UNK
     Route: 048
  8. VENLAFAXINE HCL [Suspect]
     Active Substance: VENLAFAXINE HYDROCHLORIDE
     Dosage: 75 MG, UNK
     Route: 048
  9. UVEDOSE [Concomitant]
     Active Substance: CHOLECALCIFEROL
     Dosage: UNK
     Route: 048
  10. PANTOPRAZOLE [Concomitant]
     Active Substance: PANTOPRAZOLE
     Dosage: UNK
     Route: 048
  11. SERETIDE [Concomitant]
     Active Substance: FLUTICASONE PROPIONATE\SALMETEROL XINAFOATE
     Dosage: UNK
     Route: 055
  12. EZETROL [Concomitant]
     Active Substance: EZETIMIBE
     Dosage: UNK
     Route: 048
  13. LAROXYL [Suspect]
     Active Substance: AMITRIPTYLINE HYDROCHLORIDE
     Dosage: UNK
     Route: 048
  14. TELMISARTAN. [Suspect]
     Active Substance: TELMISARTAN
     Indication: ESSENTIAL HYPERTENSION
     Dosage: UNK
     Route: 048
  15. XYZALL [Concomitant]
     Active Substance: LEVOCETIRIZINE DIHYDROCHLORIDE
     Dosage: UNK
     Route: 048
  16. ASPIRINE [Concomitant]
     Active Substance: ASPIRIN
     Dosage: UNK
     Route: 048

REACTIONS (1)
  - Fall [Recovered/Resolved]

NARRATIVE: CASE EVENT DATE: 20180319
